FAERS Safety Report 17725780 (Version 1)
Quarter: 2020Q2

REPORT INFORMATION
  Report Type: Spontaneous
  Country: CA (occurrence: CA)
  Receive Date: 20200429
  Receipt Date: 20200429
  Transmission Date: 20200714
  Serious: Yes (Life-Threatening, Hospitalization, Other)
  Sender: FDA-Public Use
  Company Number: CA-PFIZER INC-2020172591

PATIENT
  Age: 80 Year
  Sex: Female
  Weight: 61 kg

DRUGS (6)
  1. SYNTHROID [Concomitant]
     Active Substance: LEVOTHYROXINE SODIUM
     Dosage: UNK
  2. VENTOLIN [Concomitant]
     Active Substance: ALBUTEROL SULFATE
     Dosage: UNK
  3. ADALAT CC [Concomitant]
     Active Substance: NIFEDIPINE
     Dosage: UNK
  4. AZITHROMYCIN ANHYDROUS. [Suspect]
     Active Substance: AZITHROMYCIN ANHYDROUS
     Indication: BRONCHIECTASIS
     Dosage: 250 MG, 1X/DAY
     Route: 048
  5. TOBRAMYCIN. [Suspect]
     Active Substance: TOBRAMYCIN
     Indication: BRONCHIECTASIS
     Dosage: 250 MG
     Route: 055
  6. PRIMIDONE. [Concomitant]
     Active Substance: PRIMIDONE
     Dosage: UNK

REACTIONS (2)
  - Acid fast bacilli infection [Recovered/Resolved]
  - Respiratory failure [Recovered/Resolved]
